FAERS Safety Report 24018245 (Version 1)
Quarter: 2024Q2

REPORT INFORMATION
  Report Type: Spontaneous
  Country: US (occurrence: US)
  Receive Date: 20240627
  Receipt Date: 20240627
  Transmission Date: 20240715
  Serious: Yes (Other)
  Sender: FDA-Public Use
  Company Number: US-UNITED THERAPEUTICS-UNT-2024-018973

PATIENT
  Sex: Female

DRUGS (7)
  1. TYVASO [Suspect]
     Active Substance: TREPROSTINIL
     Indication: Product used for unknown indication
     Dosage: UNK
  2. OPSUMIT [Suspect]
     Active Substance: MACITENTAN
     Indication: Pulmonary arterial hypertension
     Dosage: 10 MG, QD
     Dates: start: 202101
  3. OPSUMIT [Suspect]
     Active Substance: MACITENTAN
     Dosage: UNK
  4. OPSUMIT [Suspect]
     Active Substance: MACITENTAN
     Dosage: UNK
  5. BENZONATATE [Suspect]
     Active Substance: BENZONATATE
     Indication: Cough
     Dosage: UNK
  6. GUAIFENESIN [Suspect]
     Active Substance: GUAIFENESIN
     Indication: Cough
     Dosage: UNK
  7. ADEMPAS [Concomitant]
     Active Substance: RIOCIGUAT
     Indication: Product used for unknown indication
     Dosage: UNK

REACTIONS (21)
  - Cataract [Unknown]
  - Epistaxis [Unknown]
  - Seasonal allergy [Unknown]
  - Eye pruritus [Unknown]
  - Ocular hyperaemia [Unknown]
  - Complex regional pain syndrome [Unknown]
  - Anxiety [Unknown]
  - Depression [Unknown]
  - Post-traumatic stress disorder [Unknown]
  - Fatigue [Unknown]
  - Productive cough [Unknown]
  - Pain [Unknown]
  - Rhinorrhoea [Unknown]
  - Tympanic membrane perforation [Unknown]
  - Pain in extremity [Unknown]
  - Back pain [Unknown]
  - Musculoskeletal pain [Unknown]
  - Nerve injury [Unknown]
  - Dysphonia [Unknown]
  - Abdominal pain upper [Unknown]
  - Dizziness [Unknown]
